FAERS Safety Report 4376105-0 (Version None)
Quarter: 2004Q2

REPORT INFORMATION
  Report Type: 
  Country: None (occurrence: None)
  Receive Date: 20040611
  Receipt Date: 20040603
  Transmission Date: 20050107
  Serious: Yes (Hospitalization, Disabling)
  Sender: FDA-Public Use
  Company Number: FR-GLAXOSMITHKLINE-B0334588A

PATIENT
  Age: 54 Year
  Sex: Male
  Weight: 84 kg

DRUGS (5)
  1. AGENERASE [Suspect]
     Indication: HIV INFECTION
     Dosage: 900MG PER DAY
     Route: 048
     Dates: start: 20031226
  2. EPIVIR [Suspect]
     Indication: HIV INFECTION
     Dosage: 300MG PER DAY
     Route: 048
     Dates: start: 20031226
  3. NORVIR [Suspect]
     Indication: HIV INFECTION
     Dosage: 200MG PER DAY
     Route: 048
     Dates: start: 20031226
  4. VIREAD [Suspect]
     Indication: HIV INFECTION
     Dosage: 300MG PER DAY
     Route: 048
     Dates: start: 20031226
  5. BACTRIM [Suspect]
     Dosage: 1UNIT PER DAY
     Route: 048
     Dates: start: 19920701

REACTIONS (12)
  - BLINDNESS [None]
  - CYTOMEGALOVIRUS CHORIORETINITIS [None]
  - ERYTHEMA OF EYELID [None]
  - EYE PAIN [None]
  - HEADACHE [None]
  - PHOTOPHOBIA [None]
  - RETINAL DETACHMENT [None]
  - RHINITIS [None]
  - UVEITIS [None]
  - VASCULITIS CEREBRAL [None]
  - VISION BLURRED [None]
  - VISUAL ACUITY REDUCED [None]
